FAERS Safety Report 11069257 (Version 1)
Quarter: 2015Q2

REPORT INFORMATION
  Report Type: Spontaneous
  Country: CH (occurrence: CH)
  Receive Date: 20150427
  Receipt Date: 20150427
  Transmission Date: 20150821
  Serious: Yes (Other)
  Sender: FDA-Public Use
  Company Number: CH-BAYER-2015-137091

PATIENT
  Age: 67 Year
  Sex: Male

DRUGS (27)
  1. DIPIPERON [Suspect]
     Active Substance: PIPAMPERONE
     Dosage: UNK
     Dates: start: 20150207, end: 20150214
  2. TEMESTA [Suspect]
     Active Substance: LORAZEPAM
     Dosage: 6 MG, UNK
     Dates: start: 20150216, end: 20150226
  3. PARAGAR [GELID AMAN EXT,GELID CARTIL EXT,GRAC CONFERV EXT,PARAFF, [Concomitant]
     Dosage: UNK
  4. PURSENNID [SENNA ALEXANDRINA LEAF] [Concomitant]
     Dosage: UNK
  5. ATARAX [Concomitant]
     Active Substance: HYDROXYZINE\HYDROXYZINE HYDROCHLORIDE
     Dosage: UNK
  6. NOVALGIN [Suspect]
     Active Substance: METAMIZOLE SODIUM
     Dosage: UNK
     Dates: start: 20150208, end: 20150211
  7. ZESTRIL [Suspect]
     Active Substance: LISINOPRIL
     Dosage: UNK
     Dates: start: 20150213
  8. ADALAT CC [Suspect]
     Active Substance: NIFEDIPINE
     Dosage: UNK
     Dates: start: 20150207
  9. PANTOZOL [Suspect]
     Active Substance: PANTOPRAZOLE SODIUM
     Dosage: UNK
     Dates: start: 20150208, end: 20150302
  10. ASPIRIN CARDIO [Suspect]
     Active Substance: ASPIRIN
     Dosage: UNK
     Dates: start: 20150211, end: 20150225
  11. VANCOCIN [Suspect]
     Active Substance: VANCOMYCIN HYDROCHLORIDE
     Dosage: UNK
     Dates: start: 20150221, end: 20150225
  12. NERVIFENE [Suspect]
     Active Substance: CHLORAL HYDRATE
     Dosage: UNK
     Dates: start: 20150227, end: 20150228
  13. DUPHALAC [GALACTOSE,LACTOSE,LACTULOSE] [Concomitant]
     Dosage: UNK
  14. FRAGMIN [Concomitant]
     Active Substance: DALTEPARIN SODIUM
     Dosage: UNK
  15. VALVERDE [FICUS CARICA FRUIT,SENNA ALEXANDRINA FRUIT,SENNOSIDE B] [Concomitant]
     Dosage: UNK
  16. ZOLPIDEM TARTRATE. [Concomitant]
     Active Substance: ZOLPIDEM TARTRATE
     Dosage: UNK
  17. KCL RETARD ZYMA [Concomitant]
     Dosage: UNK
  18. MAGNESIOCARD [Concomitant]
     Active Substance: MAGNESIUM ASPARTATE HYDROCHLORIDE
     Dosage: UNK
  19. DAFALGAN [Suspect]
     Active Substance: ACETAMINOPHEN
     Dosage: UNK
     Dates: start: 20150208, end: 20150210
  20. CONCOR [Concomitant]
     Active Substance: BISOPROLOL FUMARATE
     Dosage: UNK
  21. ANGIOX [Concomitant]
     Active Substance: BIVALIRUDIN
     Dosage: UNK
     Dates: start: 20150213, end: 20150302
  22. NORVASC [Suspect]
     Active Substance: AMLODIPINE BESYLATE
     Dosage: UNK
     Dates: start: 20150222
  23. TAZOBAC [Suspect]
     Active Substance: PIPERACILLIN SODIUM\TAZOBACTAM SODIUM
     Dosage: UNK
     Dates: start: 20150212, end: 20150218
  24. MARCOUMAR [Concomitant]
     Active Substance: PHENPROCOUMON
     Dosage: UNK
  25. TOREM [Suspect]
     Active Substance: TORSEMIDE
     Dosage: UNK
     Dates: start: 20150208, end: 20150211
  26. LASIX [Suspect]
     Active Substance: FUROSEMIDE
     Dosage: UNK
     Dates: start: 20150208, end: 20150208
  27. PERFALGAN [Suspect]
     Active Substance: ACETAMINOPHEN
     Dosage: UNK
     Dates: start: 20150212, end: 20150213

REACTIONS (1)
  - Neutropenia [Unknown]

NARRATIVE: CASE EVENT DATE: 20150302
